FAERS Safety Report 9247131 (Version 8)
Quarter: 2013Q4

REPORT INFORMATION
  Report Type: Spontaneous
  Country: US (occurrence: US)
  Receive Date: 20130423
  Receipt Date: 20131008
  Transmission Date: 20140711
  Serious: No
  Sender: FDA-Public Use
  Company Number: US-BIOGENIDEC-2013BI034835

PATIENT
  Age: 57 Year
  Sex: Female

DRUGS (3)
  1. TYSABRI [Suspect]
     Indication: MULTIPLE SCLEROSIS
     Route: 042
     Dates: start: 20130328
  2. RITALIN [Concomitant]
     Indication: FATIGUE
  3. VALIUM [Concomitant]
     Indication: MUSCLE TIGHTNESS

REACTIONS (30)
  - Stress [Recovered/Resolved]
  - Depressed mood [Not Recovered/Not Resolved]
  - Dysphagia [Unknown]
  - Oesophageal spasm [Recovered/Resolved]
  - Muscle tightness [Recovered/Resolved]
  - Tremor [Not Recovered/Not Resolved]
  - Panic attack [Recovered/Resolved]
  - Back pain [Not Recovered/Not Resolved]
  - Balance disorder [Unknown]
  - Rheumatoid arthritis [Recovered/Resolved with Sequelae]
  - Lung disorder [Recovered/Resolved with Sequelae]
  - Peroneal nerve palsy [Not Recovered/Not Resolved]
  - Pain in extremity [Not Recovered/Not Resolved]
  - Hypoaesthesia [Not Recovered/Not Resolved]
  - Neuralgia [Unknown]
  - Food intolerance [Not Recovered/Not Resolved]
  - Paraesthesia [Not Recovered/Not Resolved]
  - Blood glucose increased [Unknown]
  - Food poisoning [Recovered/Resolved]
  - Blood calcium increased [Unknown]
  - Mobility decreased [Not Recovered/Not Resolved]
  - Dizziness [Unknown]
  - Fatigue [Not Recovered/Not Resolved]
  - Asthenia [Recovered/Resolved]
  - Headache [Recovered/Resolved]
  - Drug ineffective [Not Recovered/Not Resolved]
  - Lethargy [Not Recovered/Not Resolved]
  - Multiple sclerosis relapse [Recovered/Resolved]
  - Arthralgia [Recovered/Resolved]
  - Malaise [Recovered/Resolved]
